FAERS Safety Report 16348530 (Version 1)
Quarter: 2019Q2

REPORT INFORMATION
  Report Type: Spontaneous
  Country: DE (occurrence: DE)
  Receive Date: 20190523
  Receipt Date: 20190523
  Transmission Date: 20190711
  Serious: Yes (Congenital Anomaly)
  Sender: FDA-Public Use
  Company Number: PHHY2019DE113535

PATIENT
  Sex: Female
  Weight: 3.24 kg

DRUGS (1)
  1. METFORMIN [Suspect]
     Active Substance: METFORMIN HYDROCHLORIDE
     Indication: FOETAL EXPOSURE DURING PREGNANCY
     Dosage: MATERNAL DOSE: 1000 MG, QD, ORAL
     Route: 064

REACTIONS (2)
  - Cleft lip and palate [Not Recovered/Not Resolved]
  - Foetal exposure during pregnancy [Unknown]
